FAERS Safety Report 9138125 (Version 1)
Quarter: 2013Q1

REPORT INFORMATION
  Report Type: Other
  Country: US (occurrence: US)
  Receive Date: 20130304
  Receipt Date: 20130304
  Transmission Date: 20140127
  Serious: Yes (Hospitalization)
  Sender: FDA-Public Use
  Company Number: US-FRI-1000042933

PATIENT
  Sex: 0

DRUGS (1)
  1. DILTIAZEM [Suspect]

REACTIONS (1)
  - Adverse drug reaction [Unknown]
